FAERS Safety Report 10014947 (Version 1)
Quarter: 2014Q1

REPORT INFORMATION
  Report Type: Spontaneous
  Country: US (occurrence: US)
  Receive Date: 20140317
  Receipt Date: 20140317
  Transmission Date: 20141002
  Serious: Yes (Other)
  Sender: FDA-Public Use
  Company Number: US-JNJFOC-20140304651

PATIENT
  Age: 64 Year
  Sex: Female
  Weight: 97.52 kg

DRUGS (9)
  1. INVEGA SUSTENNA [Suspect]
     Indication: PRODUCT USED FOR UNKNOWN INDICATION
     Route: 030
  2. INVEGA SUSTENNA [Suspect]
     Indication: PRODUCT USED FOR UNKNOWN INDICATION
     Route: 030
     Dates: start: 20131127
  3. INVEGA SUSTENNA [Suspect]
     Indication: PRODUCT USED FOR UNKNOWN INDICATION
     Route: 030
     Dates: start: 20140214
  4. BENADRYL [Concomitant]
     Indication: SLEEP DISORDER
     Dosage: AT BEDTIME
     Route: 065
  5. GLARGINE INSULIN [Concomitant]
     Indication: DIABETES MELLITUS
     Route: 065
  6. METFORMIN [Concomitant]
     Indication: DIABETES MELLITUS
     Route: 065
  7. SIMVASTATIN [Concomitant]
     Indication: BLOOD CHOLESTEROL
     Route: 065
  8. TYLENOL [Concomitant]
     Route: 065
  9. MILK OF MAGNESIA [Concomitant]
     Indication: ANTACID THERAPY
     Route: 065

REACTIONS (4)
  - Pneumonia [Unknown]
  - Incorrect route of drug administration [Unknown]
  - Somnolence [Unknown]
  - Feeling abnormal [Unknown]
